FAERS Safety Report 10440913 (Version 1)
Quarter: 2014Q3

REPORT INFORMATION
  Report Type: Spontaneous
  Country: US (occurrence: None)
  Receive Date: 20140905
  Receipt Date: 20140905
  Transmission Date: 20150326
  Serious: Yes (Disabling)
  Sender: FDA-Public Use
  Company Number: None

PATIENT
  Age: 57 Year
  Sex: Female
  Weight: 56.7 kg

DRUGS (1)
  1. LEVOFLOXACIN 500 MG ZYGENERICS [Suspect]
     Active Substance: LEVOFLOXACIN
     Indication: DIVERTICULITIS
     Dosage: 1 PILL, ONCE DAILY, TAKEN BY MOUTH
     Route: 048
     Dates: start: 20140827, end: 20140831

REACTIONS (10)
  - Chest pain [None]
  - Tendon pain [None]
  - Diarrhoea [None]
  - Chromaturia [None]
  - Dizziness [None]
  - Constipation [None]
  - Gastrointestinal disorder [None]
  - Lethargy [None]
  - Contusion [None]
  - Decreased appetite [None]

NARRATIVE: CASE EVENT DATE: 20140901
